FAERS Safety Report 15483193 (Version 1)
Quarter: 2018Q4

REPORT INFORMATION
  Report Type: Spontaneous
  Country: JP (occurrence: JP)
  Receive Date: 20181010
  Receipt Date: 20181010
  Transmission Date: 20190205
  Serious: Yes (Hospitalization)
  Sender: FDA-Public Use
  Company Number: JP-TEVA-201805_00001763

PATIENT
  Age: 67 Year
  Sex: Female
  Weight: 49 kg

DRUGS (10)
  1. METOCLOPRAMIDE. [Concomitant]
     Active Substance: METOCLOPRAMIDE
     Route: 065
  2. PACLITAXEL. [Suspect]
     Active Substance: PACLITAXEL
     Indication: UTERINE CANCER
     Dosage: 250 MILLIGRAM DAILY;
     Route: 041
     Dates: start: 20180219, end: 20180219
  3. REBAMIPIDE [Concomitant]
     Active Substance: REBAMIPIDE
     Route: 065
  4. CARBOPLATIN. [Suspect]
     Active Substance: CARBOPLATIN
     Indication: UTERINE CANCER
     Dosage: 500 MILLIGRAM DAILY;
     Route: 041
     Dates: start: 20180219, end: 20180219
  5. DEXART [Concomitant]
     Active Substance: DEXAMETHASONE SODIUM PHOSPHATE
     Route: 065
  6. LOXOPROFEN NA [Concomitant]
     Active Substance: LOXOPROFEN SODIUM
     Route: 065
     Dates: start: 20180202
  7. GRANISETRON INTRAVENOUS INFUSION BAG 1MG/50ML ^TEVA^ [Suspect]
     Active Substance: GRANISETRON
     Indication: ABDOMINAL DISCOMFORT
     Dosage: 1 MILLIGRAM DAILY;
     Route: 041
     Dates: start: 20180219, end: 20180219
  8. GASTER [Concomitant]
     Active Substance: FAMOTIDINE
     Route: 065
  9. RESTAMIN [Concomitant]
     Active Substance: DIPHENHYDRAMINE
     Route: 065
     Dates: start: 20180219
  10. MAGNESIUM OXIDE. [Concomitant]
     Active Substance: MAGNESIUM OXIDE
     Route: 065
     Dates: start: 20180206

REACTIONS (2)
  - Ileus paralytic [Recovered/Resolved]
  - Abdominal pain [Unknown]

NARRATIVE: CASE EVENT DATE: 20180220
